FAERS Safety Report 9155180 (Version 2)
Quarter: 2013Q1

REPORT INFORMATION
  Report Type: Spontaneous
  Country: None (occurrence: None)
  Receive Date: 20130206
  Receipt Date: 20130208
  Transmission Date: 20140127
  Serious: Yes (Disabling)
  Sender: FDA-Public Use
  Company Number: 1586750

PATIENT
  Age: 68 Year
  Sex: Female

DRUGS (1)
  1. METHOTREXATE [Suspect]
     Indication: CENTRAL NERVOUS SYSTEM LYMPHOMA
     Route: 042

REACTIONS (7)
  - Central nervous system lymphoma [None]
  - Neoplasm recurrence [None]
  - Visual impairment [None]
  - Vitritis [None]
  - Therapeutic response decreased [None]
  - Haematotoxicity [None]
  - Lymphoma [None]
